FAERS Safety Report 12293374 (Version 1)
Quarter: 2016Q2

REPORT INFORMATION
  Report Type: Spontaneous
  Country: US (occurrence: US)
  Receive Date: 20160421
  Receipt Date: 20160421
  Transmission Date: 20160815
  Serious: Yes (Hospitalization, Other)
  Sender: FDA-Public Use
  Company Number: US-FRI-1000083897

PATIENT
  Sex: 0

DRUGS (4)
  1. VITAMIN C [Concomitant]
     Active Substance: ASCORBIC ACID
  2. CENTRUM [Concomitant]
     Active Substance: VITAMINS
  3. ALLOCHRYSINE [Concomitant]
  4. ARMOUR THYROID [Suspect]
     Active Substance: THYROID, PORCINE
     Dosage: 123 MG
     Route: 048

REACTIONS (7)
  - Wrong technique in product usage process [Unknown]
  - Fall [Recovered/Resolved]
  - Drug dose omission [Unknown]
  - Migraine [Unknown]
  - Laceration [Recovered/Resolved]
  - Sleep disorder [Unknown]
  - Limb injury [Recovered/Resolved]

NARRATIVE: CASE EVENT DATE: 20150701
